FAERS Safety Report 7114891-7 (Version None)
Quarter: 2010Q4

REPORT INFORMATION
  Report Type: 
  Country: None (occurrence: None)
  Receive Date: 20101122
  Receipt Date: 20101112
  Transmission Date: 20110411
  Serious: No
  Sender: FDA-Public Use
  Company Number: US-BIOGENIDEC-2010BI040132

PATIENT
  Sex: Female

DRUGS (2)
  1. TYSABRI [Suspect]
     Indication: MULTIPLE SCLEROSIS
     Route: 042
     Dates: start: 20060101, end: 20070101
  2. TYSABRI [Suspect]
     Route: 042
     Dates: start: 20070101

REACTIONS (2)
  - HYPERTENSION [None]
  - HYPOTENSION [None]
